FAERS Safety Report 9639414 (Version 2)
Quarter: 2013Q4

REPORT INFORMATION
  Report Type: Report from Study
  Country: FR (occurrence: FR)
  Receive Date: 20131022
  Receipt Date: 20131030
  Transmission Date: 20140711
  Serious: Yes (Hospitalization)
  Sender: FDA-Public Use
  Company Number: FR-ROCHE-1288768

PATIENT
  Age: 42 Year
  Sex: Female

DRUGS (53)
  1. PERTUZUMAB [Suspect]
     Indication: HER-2 POSITIVE BREAST CANCER
     Dosage: LOADING DOSE FOR CYCLE 1 ONLY.
     Route: 042
     Dates: start: 20130619, end: 20130619
  2. PERTUZUMAB [Suspect]
     Dosage: MAINTENANCE DOSE. LAST DOSE PRIOR TO SAE: 03/OCT/2013.
     Route: 042
  3. TRASTUZUMAB [Suspect]
     Indication: HER-2 POSITIVE BREAST CANCER
     Dosage: LAST DOSE PRIOR TO SAE: 03/OCT/2013.
     Route: 042
     Dates: start: 20130620
  4. PACLITAXEL [Suspect]
     Indication: HER-2 POSITIVE BREAST CANCER
     Dosage: LAST DOSE PRIOR TO SAE: 03/OCT/2013.
     Route: 042
     Dates: start: 20130621, end: 20131003
  5. DEXAMETHASONE [Concomitant]
     Indication: PREMEDICATION
     Route: 065
     Dates: start: 20130621
  6. DEXCHLORPHENIRAMINE [Concomitant]
     Indication: PREMEDICATION
     Route: 065
     Dates: start: 20130621
  7. RANITIDINE [Concomitant]
     Indication: PREMEDICATION
     Route: 065
     Dates: start: 20130621
  8. ONDANSETRON [Concomitant]
     Indication: PREMEDICATION
     Route: 065
     Dates: start: 20130621
  9. XANAX [Concomitant]
     Route: 065
     Dates: start: 201306, end: 20131010
  10. LASILIX [Concomitant]
     Route: 065
     Dates: start: 201306, end: 20130621
  11. SOLUPRED (FRANCE) [Concomitant]
     Route: 065
     Dates: start: 201306, end: 20130629
  12. ATARAX (FRANCE) [Concomitant]
     Route: 065
     Dates: start: 20130628, end: 20130823
  13. VOGALENE [Concomitant]
     Route: 065
     Dates: start: 20130722, end: 20130725
  14. ZOPHREN [Concomitant]
     Route: 065
     Dates: start: 20130725, end: 20130817
  15. ZOPHREN [Concomitant]
     Route: 065
     Dates: start: 20130818, end: 20130822
  16. DIFFU-K [Concomitant]
     Route: 065
     Dates: start: 20130801, end: 20130817
  17. DIFFU-K [Concomitant]
     Route: 065
     Dates: start: 20130818
  18. INEXIUM [Concomitant]
     Indication: PROPHYLAXIS
     Route: 065
     Dates: start: 20130817, end: 20130822
  19. INEXIUM [Concomitant]
     Route: 065
     Dates: start: 20131009, end: 20131010
  20. PARACETAMOL [Concomitant]
     Route: 065
     Dates: start: 20130817, end: 20130820
  21. PARACETAMOL [Concomitant]
     Route: 065
     Dates: start: 20130909
  22. SOLU-MEDROL [Concomitant]
     Route: 065
     Dates: start: 20130817, end: 20130818
  23. SOLU-MEDROL [Concomitant]
     Route: 065
     Dates: start: 20130819, end: 20130820
  24. SOLU-MEDROL [Concomitant]
     Route: 065
     Dates: start: 20130826
  25. CEFTRIAXONE [Concomitant]
     Route: 065
     Dates: start: 20130816, end: 20130826
  26. MANNITOL [Concomitant]
     Route: 065
     Dates: start: 20130816, end: 20130818
  27. MANNITOL [Concomitant]
     Route: 065
     Dates: start: 20130819, end: 20130819
  28. ORBENINE [Concomitant]
     Route: 065
     Dates: start: 20130817, end: 20130902
  29. ULCAR (FRANCE) [Concomitant]
     Route: 065
     Dates: start: 20130817, end: 20130819
  30. ZOMETA [Concomitant]
     Indication: PROPHYLAXIS
     Route: 065
     Dates: start: 201307
  31. VANCOMYCINE [Concomitant]
     Route: 065
     Dates: start: 20130817, end: 20130817
  32. RADIOTHERAPY [Concomitant]
     Dosage: TOTAL DOSE: 30GY.
     Route: 065
     Dates: start: 20130704, end: 20130719
  33. FLAMMAZINE [Concomitant]
     Route: 065
     Dates: start: 20130806, end: 20130813
  34. FUCIDINE (FRANCE) [Concomitant]
     Dosage: TOTAL DAILY DOSE: 2 APPLICATIONS.
     Route: 065
     Dates: start: 20130806, end: 20130812
  35. DERMALIBOUR [Concomitant]
     Route: 065
     Dates: start: 20130813
  36. HIBISCRUB [Concomitant]
     Route: 065
     Dates: start: 20130806
  37. DIPROSONE [Concomitant]
     Route: 065
     Dates: start: 20130814, end: 20130821
  38. OXYNORM [Concomitant]
     Route: 065
     Dates: start: 20130908, end: 20130911
  39. DAFALGAN CODEINE [Concomitant]
     Route: 065
     Dates: start: 20130909
  40. PRIMPERAN (FRANCE) [Concomitant]
     Indication: PROPHYLAXIS OF NAUSEA AND VOMITING
     Route: 065
     Dates: start: 20130823
  41. FRAGMINE [Concomitant]
     Dosage: FRAGMINE 5000.
     Route: 065
     Dates: start: 201306, end: 20130721
  42. ORELOX [Concomitant]
     Route: 065
     Dates: start: 20130923, end: 20130927
  43. DERINOX (FRANCE) [Concomitant]
     Route: 065
     Dates: start: 20130923, end: 20130927
  44. SPIFEN [Concomitant]
     Route: 065
     Dates: start: 20130923, end: 20130927
  45. TOPLEXIL (FRANCE) [Concomitant]
     Dosage: TOTAL DAILY DOSE: 1 SPOON.
     Route: 065
     Dates: start: 20130923, end: 20130930
  46. AMOXICILLINE [Concomitant]
     Route: 065
     Dates: start: 20130930
  47. CELESTENE (FRANCE) [Concomitant]
     Route: 065
     Dates: start: 20130930
  48. DOLIPRANE [Concomitant]
     Route: 065
     Dates: start: 20130930
  49. TIORFAN [Concomitant]
     Route: 065
     Dates: start: 20130920, end: 20131008
  50. TRIFLUCAN [Concomitant]
     Route: 065
     Dates: start: 20131003, end: 20131008
  51. PANTOPRAZOLE [Concomitant]
     Route: 065
     Dates: start: 20130816, end: 20131013
  52. FLAGYL [Concomitant]
     Route: 065
     Dates: start: 20131009
  53. MORPHINE [Concomitant]
     Route: 065
     Dates: start: 20131009

REACTIONS (1)
  - Clostridium difficile colitis [Recovered/Resolved]
